FAERS Safety Report 10762546 (Version 1)
Quarter: 2015Q1

REPORT INFORMATION
  Report Type: Spontaneous
  Country: US (occurrence: None)
  Receive Date: 20150129
  Receipt Date: 20150129
  Transmission Date: 20150721
  Serious: Yes (Hospitalization)
  Sender: FDA-Public Use
  Company Number: 119945

PATIENT
  Sex: Female

DRUGS (3)
  1. ZONEGRAN (ZONISAMIDE) CAPSULES [Concomitant]
     Dates: start: 2012
  2. ZONEGRAN (ZONISAMIDE) CAPSULE [Concomitant]
     Dates: start: 201205
  3. KEPPRA XR [Suspect]
     Active Substance: LEVETIRACETAM
     Indication: SEIZURE
     Dosage: 2250MG/3000MG
     Dates: start: 2012

REACTIONS (2)
  - Seizure [None]
  - Inappropriate schedule of drug administration [None]

NARRATIVE: CASE EVENT DATE: 2012
